FAERS Safety Report 14664645 (Version 1)
Quarter: 2018Q1

REPORT INFORMATION
  Report Type: Spontaneous
  Country: FR (occurrence: FR)
  Receive Date: 20180321
  Receipt Date: 20180321
  Transmission Date: 20180509
  Serious: Yes (Hospitalization)
  Sender: FDA-Public Use
  Company Number: FR-PFIZER INC-2018108719

PATIENT
  Age: 46 Year
  Sex: Male

DRUGS (4)
  1. VALIUM [Suspect]
     Active Substance: DIAZEPAM
     Dosage: 30 DF, 1X/DAY
     Route: 065
     Dates: start: 20180102, end: 20180106
  2. COCAINE [Suspect]
     Active Substance: COCAINE
     Dosage: UNK
     Route: 042
     Dates: start: 20180102, end: 20180106
  3. STILNOX [Suspect]
     Active Substance: ZOLPIDEM TARTRATE
     Dosage: 3 DF, 1X/DAY
     Route: 065
     Dates: start: 20180102, end: 20180106
  4. XANAX [Suspect]
     Active Substance: ALPRAZOLAM
     Dosage: UNK
     Route: 065
     Dates: start: 20180102, end: 20180106

REACTIONS (1)
  - Poisoning deliberate [Recovered/Resolved with Sequelae]

NARRATIVE: CASE EVENT DATE: 20180102
